FAERS Safety Report 10149666 (Version 3)
Quarter: 2014Q2

REPORT INFORMATION
  Report Type: Spontaneous
  Country: US (occurrence: US)
  Receive Date: 20140502
  Receipt Date: 20140620
  Transmission Date: 20141212
  Serious: Yes (Other)
  Sender: FDA-Public Use
  Company Number: US-SA-2014SA055648

PATIENT
  Age: 67 Year
  Sex: Male

DRUGS (1)
  1. ALLEGRA [Suspect]
     Indication: HYPERSENSITIVITY
     Route: 048
     Dates: start: 2000

REACTIONS (3)
  - Lung infection [Unknown]
  - Drug ineffective [Unknown]
  - Drug dependence [Unknown]
